FAERS Safety Report 10102313 (Version 2)
Quarter: 2014Q2

REPORT INFORMATION
  Report Type: Report from Study
  Country: US (occurrence: US)
  Receive Date: 20140424
  Receipt Date: 20140512
  Transmission Date: 20141212
  Serious: Yes (Hospitalization)
  Sender: FDA-Public Use
  Company Number: US-ACTELION-A-US2014-97611

PATIENT
  Age: 23 Month
  Sex: Female

DRUGS (2)
  1. TRACLEER [Suspect]
     Indication: PULMONARY ARTERIAL HYPERTENSION
     Dosage: 15.625 MG, BID
     Route: 048
     Dates: start: 20130823
  2. SILDENAFIL [Concomitant]

REACTIONS (2)
  - Craniosynostosis [Recovering/Resolving]
  - Intracranial pressure increased [Recovering/Resolving]
